FAERS Safety Report 9590883 (Version 1)
Quarter: 2013Q4

REPORT INFORMATION
  Report Type: Spontaneous
  Country: US (occurrence: US)
  Receive Date: 20131003
  Receipt Date: 20131003
  Transmission Date: 20140711
  Serious: No
  Sender: FDA-Public Use
  Company Number: US-AMGEN-USASP2012071709

PATIENT
  Sex: Female
  Weight: 121.54 kg

DRUGS (5)
  1. ENBREL [Suspect]
     Indication: PSORIASIS
     Dosage: 50 MG, 2 TIMES/WK
     Route: 058
  2. SYNTHROID [Concomitant]
     Dosage: 100 MG, UNK
  3. NEXIUM                             /01479302/ [Concomitant]
     Dosage: 20 MG, UNK
  4. EFFEXOR [Concomitant]
     Dosage: 100 MG, UNK
  5. DICLOFENAC [Concomitant]
     Dosage: 100 MG, UNK

REACTIONS (1)
  - Drug ineffective [Unknown]
